FAERS Safety Report 13953887 (Version 1)
Quarter: 2017Q3

REPORT INFORMATION
  Report Type: Spontaneous
  Country: US (occurrence: US)
  Receive Date: 20170911
  Receipt Date: 20170911
  Transmission Date: 20171128
  Serious: No
  Sender: FDA-Public Use
  Company Number: US-TEVA-732626ACC

PATIENT
  Sex: Female
  Weight: 68 kg

DRUGS (1)
  1. VENLAFAXINE HYDROCHLORIDE EXTENDED RELEASE CAPSULES, 37.5 MG [Suspect]
     Active Substance: VENLAFAXINE HYDROCHLORIDE
     Dates: start: 2001

REACTIONS (2)
  - Inappropriate schedule of drug administration [Unknown]
  - Abnormal faeces [Unknown]
